FAERS Safety Report 8495506-2 (Version None)
Quarter: 2012Q3

REPORT INFORMATION
  Report Type: 
  Country: None (occurrence: None)
  Receive Date: 20120709
  Receipt Date: 20120703
  Transmission Date: 20120928
  Serious: Yes (Hospitalization)
  Sender: FDA-Public Use
  Company Number: US-PFIZER INC-2010049113

PATIENT

DRUGS (6)
  1. LIPITOR [Suspect]
     Dosage: 40 MG, 1-1/2 TABLETS, DAILY
  2. TRAZODONE [Concomitant]
     Dosage: UNK
  3. MAXZIDE [Concomitant]
  4. DARVOCET-N 50 [Concomitant]
  5. XANAX [Concomitant]
     Dosage: UNK
  6. PAXIL [Concomitant]
     Dosage: UNK

REACTIONS (1)
  - ARTHROPATHY [None]
